FAERS Safety Report 18213550 (Version 1)
Quarter: 2020Q3

REPORT INFORMATION
  Report Type: Spontaneous
  Country: US (occurrence: US)
  Receive Date: 20200831
  Receipt Date: 20200831
  Transmission Date: 20201103
  Serious: No
  Sender: FDA-Public Use
  Company Number: US-PFIZER INC-2020145510

PATIENT
  Age: 66 Year
  Sex: Male
  Weight: 76.19 kg

DRUGS (1)
  1. PRISTIQ EXTENDED?RELEASE [Suspect]
     Active Substance: DESVENLAFAXINE SUCCINATE
     Indication: MAJOR DEPRESSION
     Dosage: 1 DF, DAILY
     Route: 048
     Dates: start: 20200330

REACTIONS (2)
  - Mental disorder [Unknown]
  - Confusional state [Unknown]
